FAERS Safety Report 14034557 (Version 1)
Quarter: 2017Q4

REPORT INFORMATION
  Report Type: Spontaneous
  Country: US (occurrence: US)
  Receive Date: 20171003
  Receipt Date: 20171003
  Transmission Date: 20180321
  Serious: No
  Sender: FDA-Public Use
  Company Number: US-PFIZER INC-2017423651

PATIENT
  Age: 48 Year
  Sex: Female
  Weight: 53 kg

DRUGS (4)
  1. EMBEDA [Suspect]
     Active Substance: MORPHINE SULFATE\NALTREXONE HYDROCHLORIDE
     Indication: PAIN
     Dosage: 1 DF, 2X/DAY
     Route: 048
  2. LYRICA [Concomitant]
     Active Substance: PREGABALIN
  3. CELEBREX [Concomitant]
     Active Substance: CELECOXIB
  4. EMBEDA [Suspect]
     Active Substance: MORPHINE SULFATE\NALTREXONE HYDROCHLORIDE
     Dosage: UNK
     Route: 048
     Dates: start: 2017

REACTIONS (4)
  - Drug effect incomplete [Unknown]
  - Fatigue [Unknown]
  - Intentional product misuse [Unknown]
  - Insomnia [Unknown]

NARRATIVE: CASE EVENT DATE: 2017
